FAERS Safety Report 4355558-8 (Version None)
Quarter: 2004Q2

REPORT INFORMATION
  Report Type: 
  Country: None (occurrence: None)
  Receive Date: 20040430
  Receipt Date: 20031201
  Transmission Date: 20050107
  Serious: Yes (Death, Hospitalization)
  Sender: FDA-Public Use
  Company Number: KDL037857

PATIENT
  Age: 68 Year
  Sex: Female
  Weight: 44.5 kg

DRUGS (7)
  1. EPOGEN [Suspect]
     Indication: ANAEMIA OF MALIGNANT DISEASE
     Dosage: 40000, WEEKLY, SC
     Route: 058
     Dates: start: 20030409, end: 20030601
  2. GEMCITABINE [Concomitant]
  3. CARBOPLATIN [Concomitant]
  4. PACLITAXEL [Concomitant]
  5. ANITHYPERTENSIVES [Concomitant]
  6. BLOOD CELLS, PACKED HUMAN [Concomitant]
  7. PLATELETS [Concomitant]

REACTIONS (4)
  - ALOPECIA [None]
  - INTESTINAL OBSTRUCTION [None]
  - MALIGNANT NEOPLASM PROGRESSION [None]
  - MYOCARDIAL ISCHAEMIA [None]
